FAERS Safety Report 4728078-6 (Version None)
Quarter: 2005Q3

REPORT INFORMATION
  Report Type: 
  Country: None (occurrence: None)
  Receive Date: 20050729
  Receipt Date: 20050525
  Transmission Date: 20060218
  Serious: Yes (Hospitalization)
  Sender: FDA-Public Use
  Company Number: PHNU2005DE02061

PATIENT
  Sex: Female

DRUGS (7)
  1. TRILEPTAL [Suspect]
     Indication: EPILEPSY
     Dates: start: 20041101
  2. DIOVAN [Suspect]
     Indication: HYPERTENSION
     Dosage: 80 MG, QD
     Route: 048
     Dates: start: 20050201
  3. CARBAMAZEPINE [Suspect]
     Dates: end: 20040101
  4. BISOPROLOL [Concomitant]
     Dates: start: 20041101
  5. PRAVASTATIN SODIUM [Concomitant]
     Dosage: 0.5 MG, UNK
     Dates: start: 20030101
  6. MIRTAZAPINE [Concomitant]
     Dates: start: 20050501
  7. BRONCHOFORTON [Concomitant]
     Dosage: UNK, PRN

REACTIONS (4)
  - COUGH [None]
  - EPILEPSY [None]
  - PAROSMIA [None]
  - POST PROCEDURAL COMPLICATION [None]
